FAERS Safety Report 15167001 (Version 1)
Quarter: 2018Q3

REPORT INFORMATION
  Report Type: Spontaneous
  Country: US (occurrence: US)
  Receive Date: 20180621
  Receipt Date: 20180621
  Transmission Date: 20181010
  Serious: Yes (Other)
  Sender: FDA-Public Use
  Company Number: None

PATIENT
  Age: 74 Year
  Sex: Female
  Weight: 79.65 kg

DRUGS (16)
  1. COENZYMEQ [Concomitant]
  2. EPIPEN [Concomitant]
     Active Substance: EPINEPHRINE
  3. FLOVENT DISKUS [Concomitant]
     Active Substance: FLUTICASONE PROPIONATE
  4. FLUOROMETHOLONE. [Concomitant]
     Active Substance: FLUOROMETHOLONE
  5. LETROZOLE. [Concomitant]
     Active Substance: LETROZOLE
  6. DITROPAN [Concomitant]
     Active Substance: OXYBUTYNIN CHLORIDE
  7. FLONASE [Concomitant]
     Active Substance: FLUTICASONE PROPIONATE
  8. SENEKOT [Concomitant]
  9. IBUPROFEN. [Concomitant]
     Active Substance: IBUPROFEN
  10. MAGNESIUM [Concomitant]
     Active Substance: MAGNESIUM
  11. SYNTHROID [Concomitant]
     Active Substance: LEVOTHYROXINE SODIUM
  12. IBRANCE [Suspect]
     Active Substance: PALBOCICLIB
     Indication: BREAST CANCER
     Route: 048
     Dates: start: 20160317, end: 20180621
  13. FLOMAX [Concomitant]
     Active Substance: TAMSULOSIN HYDROCHLORIDE
  14. TIMOPTIC [Concomitant]
     Active Substance: TIMOLOL MALEATE
  15. VALIUM [Concomitant]
     Active Substance: DIAZEPAM
  16. VITAMIN B12 [Concomitant]
     Active Substance: CYANOCOBALAMIN

REACTIONS (1)
  - Disease progression [None]
